FAERS Safety Report 13298011 (Version 1)
Quarter: 2017Q1

REPORT INFORMATION
  Report Type: Spontaneous
  Country: US (occurrence: US)
  Receive Date: 20170303
  Receipt Date: 20170303
  Transmission Date: 20170428
  Serious: Yes (Other)
  Sender: FDA-Public Use
  Company Number: None

PATIENT
  Sex: Female

DRUGS (1)
  1. TEMOZOLOMIDE 250MG AND 100MG SANDOZ [Suspect]
     Active Substance: TEMOZOLOMIDE
     Indication: NEUROENDOCRINE TUMOUR
     Dosage: 350MG DAILY FOR 14 DAYS EVERY 28 DAYS PO
     Route: 048
     Dates: end: 20170117

REACTIONS (1)
  - Vomiting [None]
